FAERS Safety Report 9426473 (Version 1)
Quarter: 2013Q3

REPORT INFORMATION
  Report Type: Report from Study
  Country: CO (occurrence: CO)
  Receive Date: 20130730
  Receipt Date: 20130730
  Transmission Date: 20140515
  Serious: Yes (Life-Threatening, Hospitalization)
  Sender: FDA-Public Use
  Company Number: CO-SANOFI-AVENTIS-2013SA073832

PATIENT
  Age: 60 Year
  Sex: Female

DRUGS (13)
  1. LANTUS [Suspect]
     Indication: DIABETES MELLITUS
     Dosage: DOSE:60 UNIT(S)
     Route: 058
     Dates: start: 2011
  2. APIDRA [Suspect]
     Indication: DIABETES MELLITUS
     Dosage: DOSE:16 UNIT(S)
     Route: 058
     Dates: start: 2011
  3. CLOPIDOGREL [Suspect]
     Indication: ANTICOAGULANT THERAPY
     Route: 048
     Dates: start: 201307
  4. CARVEDILOL [Suspect]
     Indication: CARDIAC FAILURE CONGESTIVE
     Route: 048
  5. SPIRONOLACTONE [Suspect]
     Indication: CARDIAC FAILURE CONGESTIVE
     Route: 048
  6. METILDIGOXIN [Suspect]
     Indication: CARDIAC FAILURE CONGESTIVE
     Route: 048
  7. FUROSEMIDE [Suspect]
     Indication: CARDIAC FAILURE CONGESTIVE
     Route: 048
  8. LEVOTHYROXINE [Concomitant]
     Indication: HYPOTHYROIDISM
     Route: 048
  9. AMLODIPINE [Concomitant]
     Indication: HYPERTENSION
     Route: 048
  10. ATORVASTATIN [Concomitant]
     Indication: DYSLIPIDAEMIA
     Route: 048
  11. RANITIDINE [Concomitant]
     Route: 048
  12. LOSARTAN [Concomitant]
     Indication: HYPERTENSION
     Route: 048
  13. GABAPENTIN [Concomitant]
     Route: 048

REACTIONS (1)
  - Acute myocardial infarction [Recovered/Resolved]
